FAERS Safety Report 4675392-9 (Version None)
Quarter: 2005Q2

REPORT INFORMATION
  Report Type: 
  Country: None (occurrence: None)
  Receive Date: 20050527
  Receipt Date: 20050216
  Transmission Date: 20051028
  Serious: No
  Sender: FDA-Public Use
  Company Number: US-BRISTOL-MYERS SQUIBB COMPANY-12864328

PATIENT
  Age: 33 Year
  Sex: Female
  Weight: 45 kg

DRUGS (6)
  1. ABILIFY [Suspect]
     Indication: DEPRESSION
     Route: 048
     Dates: start: 20050130
  2. WELLBUTRIN [Concomitant]
  3. NEURONTIN [Concomitant]
  4. XANAX [Concomitant]
  5. ATIVAN [Concomitant]
  6. MAXALT [Concomitant]

REACTIONS (4)
  - ASTHENIA [None]
  - BLOOD GLUCOSE INCREASED [None]
  - HYPERHIDROSIS [None]
  - PALPITATIONS [None]
